FAERS Safety Report 9292157 (Version 2)
Quarter: 2013Q2

REPORT INFORMATION
  Report Type: Report from Study
  Country: GB (occurrence: GB)
  Receive Date: 20130516
  Receipt Date: 20130524
  Transmission Date: 20140414
  Serious: Yes (Hospitalization, Other)
  Sender: FDA-Public Use
  Company Number: GB-JNJFOC-20130505635

PATIENT
  Age: 27 Year
  Sex: Male
  Weight: 93.2 kg

DRUGS (6)
  1. USTEKINUMAB [Suspect]
     Indication: PSORIASIS
     Route: 058
     Dates: start: 20130513
  2. USTEKINUMAB [Suspect]
     Indication: PSORIASIS
     Route: 058
     Dates: start: 20111114
  3. USTEKINUMAB [Suspect]
     Indication: PSORIASIS
     Route: 058
     Dates: start: 20130222
  4. NYSTATIN [Concomitant]
     Dates: start: 20120715
  5. TRAMADOL [Concomitant]
     Dates: start: 20110815
  6. CELECOXIB [Concomitant]
     Dates: start: 20120213

REACTIONS (2)
  - Dermatitis exfoliative [Unknown]
  - Pustular psoriasis [Recovered/Resolved with Sequelae]
